FAERS Safety Report 10073069 (Version 1)
Quarter: 2014Q2

REPORT INFORMATION
  Report Type: Spontaneous
  Country: ES (occurrence: BG)
  Receive Date: 20140411
  Receipt Date: 20140411
  Transmission Date: 20141212
  Serious: Yes (Other)
  Sender: FDA-Public Use
  Company Number: BG-FRI-1000066348

PATIENT
  Age: 67 Year
  Sex: Female

DRUGS (2)
  1. ACLIDINIUM [Suspect]
     Indication: CHRONIC OBSTRUCTIVE PULMONARY DISEASE
     Dosage: 644 MCG
     Route: 055
     Dates: start: 20140324, end: 20140326
  2. CO-IRBESSO [Concomitant]
     Indication: HYPERTENSION

REACTIONS (6)
  - Hypotonia [Not Recovered/Not Resolved]
  - Sinus tachycardia [Not Recovered/Not Resolved]
  - Tremor [Not Recovered/Not Resolved]
  - Palpitations [Not Recovered/Not Resolved]
  - Nausea [Not Recovered/Not Resolved]
  - Vomiting [Not Recovered/Not Resolved]
